FAERS Safety Report 5720814-5 (Version None)
Quarter: 2008Q2

REPORT INFORMATION
  Report Type: 
  Country: None (occurrence: None)
  Receive Date: 20080429
  Receipt Date: 20080423
  Transmission Date: 20081010
  Serious: Yes (Other)
  Sender: FDA-Public Use
  Company Number: PHNU2008DE00731

PATIENT
  Age: 82 Year
  Sex: Female

DRUGS (5)
  1. ESIDRIX [Suspect]
     Indication: HYPERTENSION
     Dosage: 0.5 DF/D
     Route: 048
     Dates: start: 20080101
  2. VALERIAN [Concomitant]
  3. ACETYLSALICYLIC ACID SRT [Concomitant]
  4. CARMEN [Concomitant]
     Indication: HYPERTENSION
     Dosage: 10 MG, BID
  5. HOMEOPATHIC PREPARATIONS [Concomitant]

REACTIONS (3)
  - BLOOD PRESSURE DECREASED [None]
  - CIRCULATORY COLLAPSE [None]
  - HEADACHE [None]
